FAERS Safety Report 11586547 (Version 6)
Quarter: 2019Q1

REPORT INFORMATION
  Report Type: Report from Study
  Country: US (occurrence: US)
  Receive Date: 20151001
  Receipt Date: 20190228
  Transmission Date: 20190417
  Serious: No
  Sender: FDA-Public Use
  Company Number: US-AEGERION PHARMACEUTICAL INC.-AEGR000480

PATIENT
  Age: 74 Year
  Sex: Female
  Weight: 70.75 kg

DRUGS (17)
  1. BYSTOLIC [Concomitant]
     Active Substance: NEBIVOLOL HYDROCHLORIDE
     Dosage: 20 MG, QD
     Route: 048
     Dates: start: 2011
  2. JUXTAPID [Suspect]
     Active Substance: LOMITAPIDE MESYLATE
     Indication: TYPE IIA HYPERLIPIDAEMIA
     Dosage: 5 MG, QD
     Route: 048
     Dates: start: 20140417, end: 20160105
  3. PITAVASTATIN. [Concomitant]
     Active Substance: PITAVASTATIN CALCIUM
     Indication: HYPERLIPIDAEMIA
     Dosage: 1 MG, QOD
     Route: 048
     Dates: start: 20130401, end: 201501
  4. IRBESARTAN. [Concomitant]
     Active Substance: IRBESARTAN
     Indication: CORONARY ARTERY DISEASE
     Dosage: 150 MG, QD
     Route: 048
     Dates: start: 2005
  5. ASPIRIN. [Concomitant]
     Active Substance: ASPIRIN
     Indication: HYPERLIPIDAEMIA
     Dosage: 325 MG, QD
     Route: 048
     Dates: start: 20130401
  6. COENZYME Q10 [Concomitant]
     Active Substance: UBIDECARENONE
     Indication: HYPERLIPIDAEMIA
     Dosage: 300 MG, QD
     Route: 048
     Dates: start: 2004
  7. LIVALO [Concomitant]
     Active Substance: PITAVASTATIN CALCIUM
     Indication: PRODUCT USED FOR UNKNOWN INDICATION
     Dosage: 2 MG, QD
     Route: 048
  8. PITAVASTATIN. [Concomitant]
     Active Substance: PITAVASTATIN CALCIUM
     Dosage: 1 MG, QD
     Route: 048
     Dates: start: 20150206
  9. EVOLOCUMAB [Concomitant]
     Active Substance: EVOLOCUMAB
     Indication: HYPERLIPIDAEMIA
     Dosage: 1 ML, ONCE EVERY 2 WEEKS
     Route: 058
     Dates: start: 20160108
  10. IRBESARTAN. [Concomitant]
     Active Substance: IRBESARTAN
     Dosage: 300 MG, QD
     Route: 048
     Dates: start: 2005
  11. NEBIVOLOL. [Concomitant]
     Active Substance: NEBIVOLOL
     Indication: CORONARY ARTERY DISEASE
     Dosage: 20 MG, QD
     Route: 048
     Dates: start: 2011
  12. LEVOTHYROXINE. [Concomitant]
     Active Substance: LEVOTHYROXINE
     Indication: HYPOTHYROIDISM
     Dosage: 75 MCG, QD
     Route: 048
     Dates: start: 20130401
  13. ZETIA [Concomitant]
     Active Substance: EZETIMIBE
     Indication: HYPERLIPIDAEMIA
     Dosage: 10 MG, QD
     Route: 048
     Dates: start: 201308
  14. OMEGA 3 [Concomitant]
     Active Substance: OMEGA-3 FATTY ACIDS
     Indication: HYPERLIPIDAEMIA
     Dosage: 1500 MG, BID
     Route: 048
     Dates: start: 1994
  15. CLOPIDOGREL [Concomitant]
     Active Substance: CLOPIDOGREL BISULFATE
     Indication: CORONARY ARTERY DISEASE
     Dosage: 75 MG, QD
     Route: 048
     Dates: start: 2005
  16. PLAVIX [Concomitant]
     Active Substance: CLOPIDOGREL BISULFATE
     Indication: PRODUCT USED FOR UNKNOWN INDICATION
     Dosage: 75 MG, QD
     Route: 048
  17. BYSTOLIC [Concomitant]
     Active Substance: NEBIVOLOL HYDROCHLORIDE
     Indication: CORONARY ARTERY DISEASE
     Dosage: 10 MG, QD
     Route: 048

REACTIONS (6)
  - Low density lipoprotein increased [Recovered/Resolved]
  - Therapy cessation [Not Recovered/Not Resolved]
  - Blood cholesterol increased [Recovered/Resolved]
  - Non-high-density lipoprotein cholesterol increased [Recovered/Resolved]
  - Stress echocardiogram abnormal [Unknown]
  - Weight decreased [Not Recovered/Not Resolved]

NARRATIVE: CASE EVENT DATE: 20140418
